FAERS Safety Report 24413703 (Version 1)
Quarter: 2024Q4

REPORT INFORMATION
  Report Type: Spontaneous
  Country: CH (occurrence: CH)
  Receive Date: 20241008
  Receipt Date: 20241008
  Transmission Date: 20250114
  Serious: Yes (Hospitalization, Other)
  Sender: JOHNSON AND JOHNSON
  Company Number: None

PATIENT
  Age: 80 Year
  Sex: Male
  Weight: 58.4 kg

DRUGS (3)
  1. XARELTO [Interacting]
     Active Substance: RIVAROXABAN
     Indication: Product used for unknown indication
     Dosage: 20 MG, UNK
     Route: 048
     Dates: end: 20240512
  2. XARELTO [Interacting]
     Active Substance: RIVAROXABAN
     Dosage: 15 MG, UNK
     Route: 048
     Dates: start: 20240513
  3. PREDNISOLONE [Interacting]
     Active Substance: PREDNISOLONE
     Indication: Product used for unknown indication
     Dosage: 25 MG, UNK
     Route: 048

REACTIONS (2)
  - Gastrointestinal haemorrhage [Recovering/Resolving]
  - Drug interaction [Recovering/Resolving]

NARRATIVE: CASE EVENT DATE: 20240513
